FAERS Safety Report 8058385-3 (Version None)
Quarter: 2012Q1

REPORT INFORMATION
  Report Type: 
  Country: None (occurrence: None)
  Receive Date: 20120120
  Receipt Date: 20120116
  Transmission Date: 20120608
  Serious: Yes (Other)
  Sender: FDA-Public Use
  Company Number: US-JNJFOC-20120105621

PATIENT
  Sex: Male
  Weight: 65.77 kg

DRUGS (16)
  1. LISINOPRIL [Concomitant]
     Indication: BLOOD PRESSURE ABNORMAL
     Route: 048
     Dates: start: 20090101
  2. SIMPONI [Suspect]
     Indication: RHEUMATOID ARTHRITIS
     Route: 058
     Dates: start: 20100801, end: 20100901
  3. PREDNISONE [Suspect]
     Route: 048
     Dates: start: 20110101
  4. ATENOLOL [Concomitant]
     Indication: BLOOD PRESSURE ABNORMAL
     Route: 048
     Dates: start: 19900101
  5. SINGULAIR [Concomitant]
     Indication: MULTIPLE ALLERGIES
     Route: 048
     Dates: start: 20100101
  6. FLOMAX [Concomitant]
     Indication: PROSTATE CANCER
     Route: 048
  7. METHOTREXATE [Suspect]
     Indication: ARTHRITIS
     Route: 058
     Dates: start: 20110101, end: 20111201
  8. CRESTOR [Concomitant]
     Indication: BLOOD CHOLESTEROL ABNORMAL
     Route: 048
     Dates: start: 20100101
  9. ALL OTHER THERAPEUTIC PRODUCTS [Concomitant]
     Indication: MULTIPLE ALLERGIES
     Route: 045
     Dates: start: 20060101
  10. SIMPONI [Suspect]
     Route: 058
     Dates: start: 20110101
  11. NORTRIPTYLINE HCL [Concomitant]
     Indication: PAIN
     Route: 048
     Dates: start: 19900101
  12. NEURONTIN [Concomitant]
     Indication: NEUROPATHY PERIPHERAL
     Route: 048
     Dates: start: 19900101
  13. METHOTREXATE [Suspect]
     Route: 058
     Dates: end: 20100901
  14. PREDNISONE [Suspect]
     Indication: ARTHRITIS
     Route: 048
     Dates: end: 20100901
  15. NEXIUM [Concomitant]
     Indication: GASTROOESOPHAGEAL REFLUX DISEASE
     Route: 048
     Dates: start: 20080101
  16. VITAMINS NOS [Concomitant]
     Route: 048

REACTIONS (10)
  - WEIGHT DECREASED [None]
  - DEHYDRATION [None]
  - UPPER RESPIRATORY TRACT INFECTION [None]
  - INJURY ASSOCIATED WITH DEVICE [None]
  - DEVICE FAILURE [None]
  - HYPOTENSION [None]
  - SINUSITIS [None]
  - ACCIDENTAL EXPOSURE [None]
  - RED BLOOD CELL ABNORMALITY [None]
  - TYPE 2 DIABETES MELLITUS [None]
